FAERS Safety Report 4392740-8 (Version None)
Quarter: 2004Q3

REPORT INFORMATION
  Report Type: 
  Country: None (occurrence: None)
  Receive Date: 20040702
  Receipt Date: 20040622
  Transmission Date: 20050211
  Serious: Yes (Other)
  Sender: FDA-Public Use
  Company Number: 143-20785-04060695

PATIENT
  Age: 31 Month

DRUGS (6)
  1. THALOMID [Suspect]
     Indication: MENINGITIS TUBERCULOUS
     Dosage: 24 MG/KG, DIVIDED INTO THREE
  2. ISONIAZID [Concomitant]
  3. RIFAMIPICIN [Concomitant]
  4. PYRAZINAMIDE [Concomitant]
  5. ETHIONAMIDE [Concomitant]
  6. PREDNISONE [Concomitant]

REACTIONS (5)
  - HEMIPLEGIA [None]
  - HEPATITIS [None]
  - LARYNGOTRACHEO BRONCHITIS [None]
  - NEUTROPENIA [None]
  - STEVENS-JOHNSON SYNDROME [None]
